FAERS Safety Report 10906273 (Version 4)
Quarter: 2015Q2

REPORT INFORMATION
  Report Type: Spontaneous
  Country: JP (occurrence: JP)
  Receive Date: 20150311
  Receipt Date: 20150625
  Transmission Date: 20150821
  Serious: Yes (Hospitalization)
  Sender: FDA-Public Use
  Company Number: JP-009507513-1503JPN003023

PATIENT
  Sex: Male

DRUGS (10)
  1. DORAL [Concomitant]
     Active Substance: QUAZEPAM
     Indication: INSOMNIA
     Dosage: 15 MG, QD
     Route: 048
     Dates: start: 201410, end: 20150203
  2. DEPAS [Concomitant]
     Active Substance: ETIZOLAM
     Indication: INSOMNIA
     Dosage: 0.25 MG, TID
     Route: 048
     Dates: start: 201410, end: 20150203
  3. BELSOMRA [Suspect]
     Active Substance: SUVOREXANT
     Dosage: DAILY DOSE UNKNOWN
     Route: 048
     Dates: start: 20150204, end: 201502
  4. DORAL [Concomitant]
     Active Substance: QUAZEPAM
     Dosage: DAILY DOSE UNKNOWN
     Route: 048
     Dates: start: 20150204
  5. BELSOMRA [Suspect]
     Active Substance: SUVOREXANT
     Dosage: 20 MG, QD
     Route: 048
     Dates: end: 20150203
  6. SEROQUEL [Concomitant]
     Active Substance: QUETIAPINE FUMARATE
     Indication: DEPRESSION
     Dosage: 25 MG, QD
     Route: 048
     Dates: start: 201410
  7. DEPAS [Concomitant]
     Active Substance: ETIZOLAM
     Dosage: DAILY DOSE UNKNOWN
     Route: 048
     Dates: start: 20150204
  8. BELSOMRA [Suspect]
     Active Substance: SUVOREXANT
     Indication: INSOMNIA
     Dosage: 10 MG, QD
     Route: 048
     Dates: start: 201411
  9. HOCHU-EKKI-TO [Concomitant]
     Active Substance: UNSPECIFIED INGREDIENT
     Indication: MALAISE
     Dosage: 1 UNDER1000UNIT, DAILY DOSE UNKNOWN, , SEPARATE NUMBER: 2 (INTERVAL UNKNOWN)
     Route: 048
     Dates: start: 201411, end: 20150203
  10. HOCHU-EKKI-TO [Concomitant]
     Active Substance: UNSPECIFIED INGREDIENT
     Indication: ABULIA

REACTIONS (10)
  - Sexually inappropriate behaviour [Unknown]
  - Language disorder [Unknown]
  - Thought blocking [Not Recovered/Not Resolved]
  - Confusional state [Not Recovered/Not Resolved]
  - Psychotic disorder [Unknown]
  - Abnormal behaviour [Recovering/Resolving]
  - Cognitive disorder [Not Recovered/Not Resolved]
  - Paraphilia [Unknown]
  - Amnesia [Not Recovered/Not Resolved]
  - Communication disorder [Unknown]

NARRATIVE: CASE EVENT DATE: 2015
